FAERS Safety Report 13741303 (Version 1)
Quarter: 2017Q3

REPORT INFORMATION
  Report Type: Spontaneous
  Country: US (occurrence: US)
  Receive Date: 20170711
  Receipt Date: 20170711
  Transmission Date: 20171127
  Serious: Yes (Life-Threatening, Hospitalization, Disabling)
  Sender: FDA-Public Use
  Company Number: None

PATIENT
  Age: 24 Year
  Sex: Female
  Weight: 58.5 kg

DRUGS (1)
  1. KLONIPIN [Suspect]
     Active Substance: CLONAZEPAM
     Indication: ANXIETY
     Dosage: ?          QUANTITY:30 TABLET(S);?
     Route: 048

REACTIONS (13)
  - Vision blurred [None]
  - Syncope [None]
  - Insomnia [None]
  - Vomiting [None]
  - Nausea [None]
  - Seizure [None]
  - Tardive dyskinesia [None]
  - Anxiety [None]
  - Paranoia [None]
  - Brain injury [None]
  - Akathisia [None]
  - Delusion [None]
  - Confusional state [None]

NARRATIVE: CASE EVENT DATE: 20170709
